FAERS Safety Report 10952630 (Version 1)
Quarter: 2015Q1

REPORT INFORMATION
  Report Type: Spontaneous
  Country: US (occurrence: None)
  Receive Date: 20150226
  Receipt Date: 20150226
  Transmission Date: 20150721
  Serious: Yes (Other)
  Sender: FDA-Public Use
  Company Number: TPA2012A03141

PATIENT
  Age: 85 Year
  Sex: Male
  Weight: 74.8 kg

DRUGS (6)
  1. UNKNOWN MEDICATION ( ALL OTHER THERAPEUTIC PRODUCTS) [Concomitant]
  2. METFORMIN [Concomitant]
     Active Substance: METFORMIN HYDROCHLORIDE
  3. AVANDIA (ROSIGLITAZONE MALEATE) [Concomitant]
  4. GLUCOPHAGE [Concomitant]
     Active Substance: METFORMIN HYDROCHLORIDE
  5. GLUCOTROL [Concomitant]
     Active Substance: GLIPIZIDE
  6. ACTOS [Suspect]
     Active Substance: PIOGLITAZONE HYDROCHLORIDE
     Indication: TYPE 2 DIABETES MELLITUS
     Dates: start: 200902, end: 201205

REACTIONS (2)
  - Bladder cancer [None]
  - Blood urine present [None]

NARRATIVE: CASE EVENT DATE: 201204
